FAERS Safety Report 23116844 (Version 1)
Quarter: 2023Q4

REPORT INFORMATION
  Report Type: Spontaneous
  Country: CA (occurrence: CA)
  Receive Date: 20231027
  Receipt Date: 20231027
  Transmission Date: 20240109
  Serious: Yes (Other)
  Sender: FDA-Public Use
  Company Number: CA-SUN PHARMACEUTICAL INDUSTRIES LTD-2023R1-414896

PATIENT
  Age: 45 Year
  Sex: Female

DRUGS (6)
  1. PREDNISONE [Suspect]
     Active Substance: PREDNISONE
     Indication: Asthma
     Dosage: 7.5 MILLIGRAM, DAILY
     Route: 048
  2. PREDNISONE [Suspect]
     Active Substance: PREDNISONE
     Dosage: 2.5 MILLIGRAM, DAILY
     Route: 048
  3. DUPILUMAB [Concomitant]
     Active Substance: DUPILUMAB
     Indication: Bronchial hyperreactivity
     Dosage: UNK (1.7 YEARS)
     Route: 065
  4. DUPILUMAB [Concomitant]
     Active Substance: DUPILUMAB
     Indication: Bronchial secretion retention
  5. DUPILUMAB [Concomitant]
     Active Substance: DUPILUMAB
     Indication: Fractional exhaled nitric oxide increased
  6. DUPILUMAB [Concomitant]
     Active Substance: DUPILUMAB
     Indication: Eosinophilia

REACTIONS (1)
  - Condition aggravated [Unknown]
